FAERS Safety Report 14019913 (Version 1)
Quarter: 2017Q3

REPORT INFORMATION
  Report Type: Spontaneous
  Country: CO (occurrence: CO)
  Receive Date: 20170928
  Receipt Date: 20170928
  Transmission Date: 20171128
  Serious: Yes (Other)
  Sender: FDA-Public Use
  Company Number: CO-AMGEN-COLSP2016153198

PATIENT
  Age: 67 Year
  Sex: Female

DRUGS (2)
  1. ARAVA [Concomitant]
     Active Substance: LEFLUNOMIDE
     Dosage: UNK
  2. ENBREL [Suspect]
     Active Substance: ETANERCEPT
     Indication: RHEUMATOID ARTHRITIS
     Dosage: 50 MG, WEEKLY
     Route: 058
     Dates: start: 20150929, end: 201709

REACTIONS (3)
  - Weight decreased [Recovered/Resolved]
  - Wound infection bacterial [Not Recovered/Not Resolved]
  - Erythema [Unknown]

NARRATIVE: CASE EVENT DATE: 201608
